FAERS Safety Report 7672090-4 (Version None)
Quarter: 2011Q3

REPORT INFORMATION
  Report Type: 
  Country: None (occurrence: None)
  Receive Date: 20110809
  Receipt Date: 20110728
  Transmission Date: 20111222
  Serious: Yes (Hospitalization, Other)
  Sender: FDA-Public Use
  Company Number: PHHY2011US68583

PATIENT
  Sex: Male

DRUGS (5)
  1. GLIPIZIDE [Concomitant]
     Dosage: UNK UKN, UNK
  2. EXJADE [Suspect]
     Indication: APLASIA PURE RED CELL
     Dosage: 1500 MG, DAILY
     Route: 048
     Dates: start: 20101201, end: 20110501
  3. SYNTHROID [Concomitant]
     Dosage: UNK UKN, UNK
  4. ACTOS [Concomitant]
     Dosage: UNK UKN, UNK
  5. CELEXA [Concomitant]
     Dosage: UNK UKN, UNK

REACTIONS (1)
  - PNEUMONIA [None]
